FAERS Safety Report 17700692 (Version 1)
Quarter: 2020Q2

REPORT INFORMATION
  Report Type: Spontaneous
  Country: IT (occurrence: IT)
  Receive Date: 20200423
  Receipt Date: 20200423
  Transmission Date: 20200714
  Serious: Yes (Death, Hospitalization, Other)
  Sender: FDA-Public Use
  Company Number: IT-AUROBINDO-AUR-APL-2020-020112

PATIENT
  Age: 53 Year
  Sex: Male

DRUGS (8)
  1. VORICONAZOLE. [Suspect]
     Active Substance: VORICONAZOLE
     Indication: ACUTE RESPIRATORY DISTRESS SYNDROME
     Dosage: 8 MILLIGRAM/KILOGRAM, ONCE A DAY (4 MG/KG, UNK (ADJUSTED FOR CREATININE CLEARANCE))
     Route: 065
  2. VANCOMYCIN HYDROCHLORIDE. [Suspect]
     Active Substance: VANCOMYCIN HYDROCHLORIDE
     Dosage: 1 GRAM, 3 TIMES A DAY
     Route: 065
  3. PIPERACILLIN AND TAZOBACTAM [Suspect]
     Active Substance: PIPERACILLIN SODIUM\TAZOBACTAM SODIUM
     Dosage: 18 GRAM, ONCE A DAY (4.5 G, (CONTINUOUS INFUSION EVERY 6 HOURS))
     Route: 065
  4. VORICONAZOLE. [Suspect]
     Active Substance: VORICONAZOLE
     Indication: BRONCHOPULMONARY ASPERGILLOSIS
     Dosage: 400 MILLIGRAM, TWO TIMES A DAY
     Route: 045
  5. AMPHOTERICIN B. [Suspect]
     Active Substance: AMPHOTERICIN B
     Indication: BRONCHOPULMONARY ASPERGILLOSIS
     Dosage: UNK, (LIPOSOMAL)
     Route: 065
  6. PIPERACILLIN AND TAZOBACTAM [Suspect]
     Active Substance: PIPERACILLIN SODIUM\TAZOBACTAM SODIUM
     Indication: ANTIBIOTIC PROPHYLAXIS
     Dosage: 4.5 GRAM (OVER 30 MIN)
     Route: 065
  7. AMPHOTERICIN B. [Suspect]
     Active Substance: AMPHOTERICIN B
     Indication: ACUTE RESPIRATORY DISTRESS SYNDROME
     Dosage: 5 MILLIGRAM/KILOGRAM
     Route: 065
  8. VANCOMYCIN HYDROCHLORIDE. [Suspect]
     Active Substance: VANCOMYCIN HYDROCHLORIDE
     Indication: ANTIBIOTIC PROPHYLAXIS
     Dosage: 1 GRAM, TWO TIMES A DAY (CONTINUOUS INFUSION OVER 4 H)
     Route: 065

REACTIONS (1)
  - Drug ineffective [Fatal]
